FAERS Safety Report 9860208 (Version 2)
Quarter: 2014Q1

REPORT INFORMATION
  Report Type: Report from Study
  Country: ES (occurrence: ES)
  Receive Date: 20140201
  Receipt Date: 20140205
  Transmission Date: 20141002
  Serious: Yes (Other)
  Sender: FDA-Public Use
  Company Number: ES-VERTEX PHARMACEUTICALS INC-2014-000523

PATIENT
  Sex: 0

DRUGS (4)
  1. TELAPREVIR [Suspect]
     Indication: HEPATITIS C
     Route: 048
  2. BOCEPREVIR [Suspect]
     Indication: HEPATITIS C
  3. RIBAVIRIN [Concomitant]
  4. PEG-INTERFERON [Concomitant]

REACTIONS (2)
  - Depression [Unknown]
  - Treatment noncompliance [Unknown]
